FAERS Safety Report 9873720 (Version 2)
Quarter: 2014Q1

REPORT INFORMATION
  Report Type: Other
  Country: US (occurrence: US)
  Receive Date: 20140206
  Receipt Date: 20140206
  Transmission Date: 20141002
  Serious: No
  Sender: FDA-Public Use
  Company Number: US-ACORDA-ACO_33453_2012

PATIENT
  Age: 68 Year
  Sex: Female

DRUGS (3)
  1. AMPYRA [Suspect]
     Indication: PRODUCT USED FOR UNKNOWN INDICATION
     Dosage: 10 MG, BID
     Dates: start: 201111
  2. AMANTADINE [Suspect]
     Indication: FATIGUE
     Dosage: UNK
  3. VITAMIN D [Concomitant]
     Indication: PRODUCT USED FOR UNKNOWN INDICATION
     Dosage: 2000 UNITS

REACTIONS (5)
  - Rash [Unknown]
  - Rash macular [Unknown]
  - Pruritus [Unknown]
  - Fatigue [Unknown]
  - Viral infection [Unknown]
